FAERS Safety Report 4512834-3 (Version None)
Quarter: 2004Q4

REPORT INFORMATION
  Report Type: 
  Country: None (occurrence: None)
  Receive Date: 20041119
  Receipt Date: 20041119
  Transmission Date: 20050328
  Serious: Yes (Other)
  Sender: FDA-Public Use
  Company Number: None

PATIENT
  Age: 41 Year
  Sex: Female
  Weight: 105 kg

DRUGS (4)
  1. TRAMADOL HCL [Suspect]
     Indication: ARTHRALGIA
     Dosage: 50 MG TID
  2. TRAMADOL HCL [Suspect]
     Indication: MYALGIA
     Dosage: 50 MG TID
  3. IBUPROFEN [Concomitant]
  4. TIZANIDINE [Concomitant]

REACTIONS (2)
  - PHARMACEUTICAL PRODUCT COMPLAINT [None]
  - PRURITUS [None]
